FAERS Safety Report 6755712-1 (Version None)
Quarter: 2010Q2

REPORT INFORMATION
  Report Type: 
  Country: None (occurrence: None)
  Receive Date: 20100604
  Receipt Date: 20100526
  Transmission Date: 20101027
  Serious: Yes (Hospitalization)
  Sender: FDA-Public Use
  Company Number: FR-PFIZER INC-2010065960

PATIENT
  Age: 74 Year
  Sex: Male
  Weight: 88 kg

DRUGS (13)
  1. SUTENT [Suspect]
     Dosage: 50 MG, UNK
     Route: 048
     Dates: start: 20100402
  2. AMLOR [Concomitant]
     Dosage: 1 MG, 2X/DAY
  3. TAHOR [Concomitant]
     Dosage: 40 MG, 1X/DAY
  4. IRBESARTAN [Concomitant]
     Dosage: 300 MG, 1X/DAY
  5. ADANCOR [Concomitant]
     Dosage: 10 MG, 2X/DAY
  6. BISOPROLOL [Concomitant]
     Dosage: 10 MG, 1X/DAY
  7. PLAVIX [Concomitant]
     Dosage: 75 MG, 1X/DAY
  8. TARDYFERON [Concomitant]
     Dosage: 1 DF, 1X/DAY
  9. DIFFU K [Concomitant]
     Dosage: 1 DF, 3X/DAY
  10. NOVONORM [Concomitant]
     Dosage: 4 MG, 2X/DAY
  11. LASIX [Concomitant]
     Dosage: 80 MG, 1X/DAY
  12. LANTUS [Concomitant]
  13. ALFACALCIDOL [Concomitant]
     Dosage: 0.5 MG, 1X/DAY

REACTIONS (2)
  - ALTERED STATE OF CONSCIOUSNESS [None]
  - ASTHENIA [None]
